FAERS Safety Report 22121668 (Version 1)
Quarter: 2023Q1

REPORT INFORMATION
  Report Type: Report from Study
  Country: US (occurrence: None)
  Receive Date: 20230321
  Receipt Date: 20230321
  Transmission Date: 20230417
  Serious: Yes (Other)
  Sender: FDA-Public Use
  Company Number: US-ROCHE-3313959

PATIENT

DRUGS (1)
  1. TOCILIZUMAB [Suspect]
     Active Substance: TOCILIZUMAB
     Indication: Malignant melanoma
     Dosage: FINAL DOSE OF THE STUDY DRUG WAS ADMINISTERED ON 25/AUG/2021.
     Route: 042
     Dates: start: 20210825

REACTIONS (3)
  - Diarrhoea [Unknown]
  - Hypotension [Unknown]
  - Disease progression [Unknown]
